FAERS Safety Report 22762739 (Version 2)
Quarter: 2023Q4

REPORT INFORMATION
  Report Type: Spontaneous
  Country: PT (occurrence: PT)
  Receive Date: 20230728
  Receipt Date: 20231106
  Transmission Date: 20240110
  Serious: Yes (Other)
  Sender: FDA-Public Use
  Company Number: PT-009507513-2307PRT006227

PATIENT
  Age: 69 Year
  Sex: Female

DRUGS (8)
  1. AXITINIB [Suspect]
     Active Substance: AXITINIB
     Dosage: 5 MILLIGRAM, BID
     Dates: start: 202301
  2. KEYTRUDA [Suspect]
     Active Substance: PEMBROLIZUMAB
     Dosage: 200MG 3/3W
     Dates: start: 202301
  3. SIMVASTATIN [Concomitant]
     Active Substance: SIMVASTATIN
     Dosage: 20 MG ID
  4. LEVOTHYROXINE [Concomitant]
     Active Substance: LEVOTHYROXINE
     Dosage: 100 MCG ID
  5. CALCIUM [Concomitant]
     Active Substance: CALCIUM
     Dosage: 1500 MG + 400 IU. ID
  6. BIOFLAVONOIDS [Concomitant]
     Active Substance: BIOFLAVONOIDS
     Dosage: 500MG ID
  7. CALCITRIOL [Concomitant]
     Active Substance: CALCITRIOL
     Dosage: 0.25MCG ID
  8. ALPRAZOLAM [Concomitant]
     Active Substance: ALPRAZOLAM
     Dosage: 0.5MG ID SOS

REACTIONS (3)
  - Necrosis [Unknown]
  - Nephropathy toxic [Unknown]
  - Haemorrhage [Unknown]

NARRATIVE: CASE EVENT DATE: 20230401
